FAERS Safety Report 6222417-5 (Version None)
Quarter: 2009Q2

REPORT INFORMATION
  Report Type: 
  Country: None (occurrence: None)
  Receive Date: 20090608
  Receipt Date: 20090522
  Transmission Date: 20091009
  Serious: Yes (Other)
  Sender: FDA-Public Use
  Company Number: KR-GENENTECH-279667

PATIENT
  Sex: Female

DRUGS (3)
  1. BEVACIZUMAB [Suspect]
     Indication: BREAST CANCER
     Dosage: 785 MG, Q3W
     Route: 042
     Dates: start: 20080508
  2. DOXORUBICIN HCL [Suspect]
     Indication: BREAST CANCER
     Dosage: 90 MG, Q3W
     Route: 042
     Dates: start: 20080508, end: 20080717
  3. CYCLOPHOSPHAMIDE [Suspect]
     Indication: BREAST CANCER
     Dosage: 900 MG, Q3W
     Route: 042
     Dates: start: 20080508, end: 20080717

REACTIONS (1)
  - CHEST DISCOMFORT [None]
